FAERS Safety Report 16661237 (Version 1)
Quarter: 2019Q3

REPORT INFORMATION
  Report Type: Spontaneous
  Country: US (occurrence: US)
  Receive Date: 20190802
  Receipt Date: 20190802
  Transmission Date: 20191004
  Serious: Yes (Other)
  Sender: FDA-Public Use
  Company Number: US-ELI_LILLY_AND_COMPANY-US201908000724

PATIENT
  Sex: Female

DRUGS (1)
  1. CYRAMZA [Suspect]
     Active Substance: RAMUCIRUMAB
     Indication: MALIGNANT NEOPLASM PROGRESSION
     Dosage: 570 MG, CYCLICAL
     Route: 042
     Dates: start: 20190306, end: 20190723

REACTIONS (1)
  - Malignant neoplasm progression [Unknown]
